FAERS Safety Report 8852006 (Version 1)
Quarter: 2012Q4

REPORT INFORMATION
  Report Type: 
  Country: ES (occurrence: ES)
  Receive Date: 20121022
  Receipt Date: 20121022
  Transmission Date: 20130627
  Serious: Yes (Hospitalization)
  Sender: FDA-Public Use
  Company Number: ES-B.I. PHARMACEUTICALS,INC./RIDGEFIELD-2012-ES-00393ES

PATIENT
  Age: 51 Year
  Sex: Male

DRUGS (6)
  1. MICARDISPLUS [Suspect]
     Indication: HYPERTENSION
     Dosage: Strength: 80/12.5mg; Daily Dose: 1DF
     Route: 048
     Dates: start: 20080617, end: 20120225
  2. PAROXETINE [Suspect]
     Indication: DEPRESSION
     Dosage: 20 mg
     Route: 048
     Dates: start: 201109, end: 20120228
  3. DUROGESIC MATRIX [Concomitant]
     Indication: CANCER PAIN
     Dosage: 600 mcg
     Route: 062
  4. PLUSVENT [Concomitant]
     Indication: CHRONIC OBSTRUCTIVE PULMONARY DISEASE
     Dosage: Strength: 25/125 mcg
     Route: 055
  5. SPIRIVA [Concomitant]
     Indication: CHRONIC OBSTRUCTIVE PULMONARY DISEASE
     Dosage: 18 mcg
     Route: 055
  6. SUMIAL [Concomitant]
     Indication: HYPERTENSION
     Dosage: 40 mg
     Route: 048
     Dates: start: 20040531

REACTIONS (3)
  - Hyponatraemia [Recovered/Resolved]
  - Slow speech [Recovered/Resolved]
  - Bradyphrenia [Recovered/Resolved]
